FAERS Safety Report 7444823-3 (Version None)
Quarter: 2011Q2

REPORT INFORMATION
  Report Type: 
  Country: None (occurrence: None)
  Receive Date: 20110429
  Receipt Date: 20110426
  Transmission Date: 20111010
  Serious: Yes (Other)
  Sender: FDA-Public Use
  Company Number: US-PFIZER INC-2010110107

PATIENT
  Sex: Female

DRUGS (8)
  1. CYCLOBENZAPRINE [Concomitant]
     Indication: MUSCLE RELAXANT THERAPY
     Dosage: UNK
     Dates: start: 20020601
  2. PAXIL [Concomitant]
     Indication: DEPRESSION
     Dosage: UNK
     Dates: start: 20020601
  3. EFFEXOR [Concomitant]
     Indication: DEPRESSION
     Dosage: UNK
     Dates: start: 20030701
  4. EFFEXOR [Concomitant]
     Indication: ANXIETY
  5. CHANTIX [Suspect]
     Indication: SMOKING CESSATION THERAPY
     Dosage: UNK
     Dates: start: 20071017, end: 20071201
  6. PAXIL [Concomitant]
     Indication: ANXIETY
  7. ALPRAZOLAM [Concomitant]
     Indication: ANXIETY
     Dosage: UNK
     Dates: start: 20020601, end: 20090101
  8. SEROQUEL [Concomitant]
     Indication: BIPOLAR DISORDER
     Dosage: UNK
     Dates: start: 20030701

REACTIONS (7)
  - SUICIDE ATTEMPT [None]
  - HOMICIDAL IDEATION [None]
  - ANXIETY [None]
  - INTENTIONAL OVERDOSE [None]
  - MENTAL DISORDER [None]
  - DEPRESSION [None]
  - AGGRESSION [None]
